FAERS Safety Report 9748929 (Version 2)
Quarter: 2013Q4

REPORT INFORMATION
  Report Type: Spontaneous
  Country: US (occurrence: US)
  Receive Date: 20131212
  Receipt Date: 20131212
  Transmission Date: 20140711
  Serious: No
  Sender: FDA-Public Use
  Company Number: US-INCYTE CORPORATION-2012IN000174

PATIENT
  Sex: Male
  Weight: 91.61 kg

DRUGS (2)
  1. JAKAFI [Suspect]
     Indication: BLOOD DISORDER
     Dosage: 5 MG, BID
     Route: 048
     Dates: start: 20120103
  2. XANAX [Concomitant]
     Indication: BLOOD DISORDER
     Dosage: UNK, QD PM
     Route: 048

REACTIONS (1)
  - Insomnia [Unknown]
